FAERS Safety Report 17817010 (Version 1)
Quarter: 2020Q2

REPORT INFORMATION
  Report Type: Spontaneous
  Country: US (occurrence: US)
  Receive Date: 20200522
  Receipt Date: 20200522
  Transmission Date: 20200714
  Serious: Yes (Hospitalization)
  Sender: FDA-Public Use
  Company Number: None

PATIENT
  Age: 78 Year
  Sex: Male
  Weight: 41.85 kg

DRUGS (8)
  1. LEVOTHYROXINE. [Concomitant]
     Active Substance: LEVOTHYROXINE
     Dates: start: 20190531
  2. NIVOLUMAB [Suspect]
     Active Substance: NIVOLUMAB
     Indication: PROSTATE CANCER
     Dosage: ?          OTHER FREQUENCY:EVERY 28 DAYS;?
     Route: 042
     Dates: start: 20190404
  3. CYANOCOBALAMIN. [Concomitant]
     Active Substance: CYANOCOBALAMIN
     Dates: start: 20000101
  4. ASPIRIN. [Concomitant]
     Active Substance: ASPIRIN
     Dates: start: 20190201
  5. COLLAGEN [Concomitant]
     Active Substance: COLLAGEN
     Dates: start: 20180101
  6. AMLODIPINE [Concomitant]
     Active Substance: AMLODIPINE BESYLATE
     Dates: start: 20200515
  7. SIMVASTATIN. [Concomitant]
     Active Substance: SIMVASTATIN
     Dates: start: 20030101
  8. LISINOPRIL. [Concomitant]
     Active Substance: LISINOPRIL
     Dates: start: 20030101, end: 20200513

REACTIONS (9)
  - Ventricular arrhythmia [None]
  - Hypoaesthesia [None]
  - Limb discomfort [None]
  - Extrasystoles [None]
  - Head injury [None]
  - Hyperkalaemia [None]
  - Eye pain [None]
  - Blood creatinine increased [None]
  - Headache [None]

NARRATIVE: CASE EVENT DATE: 20200513
